FAERS Safety Report 12491727 (Version 1)
Quarter: 2016Q2

REPORT INFORMATION
  Report Type: Spontaneous
  Country: US (occurrence: None)
  Receive Date: 20160622
  Receipt Date: 20160622
  Transmission Date: 20160815
  Serious: No
  Sender: FDA-Public Use
  Company Number: None

PATIENT
  Age: 65 Year
  Sex: Male
  Weight: 77.11 kg

DRUGS (3)
  1. NEXIUM [Concomitant]
     Active Substance: ESOMEPRAZOLE MAGNESIUM
  2. MULTI VITAMIN [Concomitant]
     Active Substance: VITAMINS
  3. SUCRALFATE. [Suspect]
     Active Substance: SUCRALFATE
     Indication: GASTRIC DISORDER
     Route: 048
     Dates: start: 20160223, end: 20160414

REACTIONS (4)
  - Condition aggravated [None]
  - Product formulation issue [None]
  - Product substitution issue [None]
  - Gastric pH decreased [None]

NARRATIVE: CASE EVENT DATE: 20160223
